FAERS Safety Report 24661368 (Version 4)
Quarter: 2025Q1

REPORT INFORMATION
  Report Type: Report from Study
  Country: CN (occurrence: CN)
  Receive Date: 20241125
  Receipt Date: 20250130
  Transmission Date: 20250409
  Serious: Yes (Hospitalization)
  Sender: EISAI
  Company Number: CN-Eisai-EC-2024-179258

PATIENT
  Age: 60 Year
  Sex: Female
  Weight: 64 kg

DRUGS (2)
  1. ERIBULIN [Suspect]
     Active Substance: ERIBULIN
     Indication: HER2 negative breast cancer
     Route: 042
     Dates: start: 20241030, end: 20241030
  2. ERIBULIN [Suspect]
     Active Substance: ERIBULIN
     Route: 042
     Dates: start: 20241127

REACTIONS (2)
  - Alanine aminotransferase increased [Recovering/Resolving]
  - Aspartate aminotransferase increased [Recovering/Resolving]

NARRATIVE: CASE EVENT DATE: 20241105
